FAERS Safety Report 9443808 (Version 1)
Quarter: 2013Q3

REPORT INFORMATION
  Report Type: Spontaneous
  Country: US (occurrence: US)
  Receive Date: 20130806
  Receipt Date: 20130806
  Transmission Date: 20140515
  Serious: No
  Sender: FDA-Public Use
  Company Number: US-009507513-1307USA012740

PATIENT
  Sex: 0

DRUGS (2)
  1. AZASITE [Suspect]
     Dosage: THEN ONE DROP IN THE AFFECTS EYES QD FOR ONE MONTH
     Route: 047
     Dates: start: 20130707
  2. AZASITE [Suspect]
     Dosage: ONE DROP IN EACH EYE BID FOR THE FIRST TWO DAYS
     Route: 047
     Dates: start: 20130705, end: 20130706

REACTIONS (4)
  - Drug dose omission [Unknown]
  - Incorrect drug administration duration [Unknown]
  - Product quality issue [Unknown]
  - No adverse event [Unknown]
